FAERS Safety Report 15535185 (Version 1)
Quarter: 2018Q4

REPORT INFORMATION
  Report Type: Spontaneous
  Country: US (occurrence: US)
  Receive Date: 20181020
  Receipt Date: 20181020
  Transmission Date: 20190205
  Serious: Yes (Hospitalization)
  Sender: FDA-Public Use
  Company Number: None

PATIENT
  Age: 66 Year
  Sex: Female

DRUGS (1)
  1. ELIQUIS [Suspect]
     Active Substance: APIXABAN
     Indication: DEEP VEIN THROMBOSIS
     Route: 048
     Dates: end: 20181018

REACTIONS (4)
  - Petechiae [None]
  - Tongue discolouration [None]
  - Stomatitis [None]
  - Platelet count decreased [None]

NARRATIVE: CASE EVENT DATE: 20181018
